FAERS Safety Report 23676516 (Version 1)
Quarter: 2024Q1

REPORT INFORMATION
  Report Type: Spontaneous
  Country: US (occurrence: US)
  Receive Date: 20240327
  Receipt Date: 20240327
  Transmission Date: 20240410
  Serious: No
  Sender: FDA-Public Use
  Company Number: US-TEVA-VS-3160488

PATIENT
  Sex: Female

DRUGS (7)
  1. PENICILLIN [Suspect]
     Active Substance: PENICILLIN
     Indication: Product used for unknown indication
     Dosage: DOSE: UNKNOWN
     Route: 065
  2. EZETIMIBE [Concomitant]
     Active Substance: EZETIMIBE
  3. MODAFINIL [Concomitant]
     Active Substance: MODAFINIL
  4. DALFAMPRIDINE [Concomitant]
     Active Substance: DALFAMPRIDINE
  5. OXYCODONE [Concomitant]
     Active Substance: OXYCODONE\OXYCODONE HYDROCHLORIDE
  6. DIETARY SUPPLEMENT [Concomitant]
     Active Substance: DIETARY SUPPLEMENT
  7. BACLOFEN [Concomitant]
     Active Substance: BACLOFEN

REACTIONS (1)
  - Rash erythematous [Unknown]
